FAERS Safety Report 9306089 (Version 1)
Quarter: 2013Q2

REPORT INFORMATION
  Report Type: Spontaneous
  Country: NZ (occurrence: NZ)
  Receive Date: 20130523
  Receipt Date: 20130523
  Transmission Date: 20140414
  Serious: Yes (Hospitalization, Other)
  Sender: FDA-Public Use
  Company Number: NZ-ELI_LILLY_AND_COMPANY-NZ201305005160

PATIENT
  Age: 26 Year
  Sex: Male

DRUGS (5)
  1. OLANZAPINE [Suspect]
     Indication: SCHIZOPHRENIA
     Dosage: 1 DF, QD
     Route: 048
  2. CLOZAPINE [Concomitant]
     Indication: SCHIZOPHRENIA
     Dosage: 200 MG, QD
     Route: 048
     Dates: start: 20121012, end: 20121224
  3. AMISULPRIDE [Concomitant]
     Indication: SCHIZOPHRENIA
     Dosage: 400 MG, QD
     Route: 048
  4. LORAZEPAM [Concomitant]
     Indication: SCHIZOPHRENIA
     Dosage: 1 DF, UNKNOWN
  5. OMEPRAZOLE [Concomitant]
     Indication: OESOPHAGITIS
     Dosage: 20 MG, QD
     Route: 048

REACTIONS (3)
  - Cardiac failure [Recovered/Resolved]
  - Myocarditis [Recovered/Resolved]
  - Pharyngitis [Recovered/Resolved]
